FAERS Safety Report 17635323 (Version 9)
Quarter: 2022Q1

REPORT INFORMATION
  Report Type: Report from Study
  Country: DE (occurrence: None)
  Receive Date: 20200407
  Receipt Date: 20220308
  Transmission Date: 20220423
  Serious: Yes (Death, Hospitalization)
  Sender: FDA-Public Use
  Company Number: DE-ROCHE-2566965

PATIENT
  Age: 82 Year
  Sex: Female
  Weight: 53.1 kg

DRUGS (8)
  1. ATEZOLIZUMAB [Suspect]
     Active Substance: ATEZOLIZUMAB
     Indication: HER2 positive breast cancer
     Dosage: DATE OF MOST RECENT DOSE OF BLINDED ATEZOLIZUMAB PRIOR TO AE 12/FEB/2020 (840 MG)
     Route: 042
     Dates: start: 20200115
  2. DOXORUBICIN [Suspect]
     Active Substance: DOXORUBICIN
     Indication: HER2 positive breast cancer
     Dosage: DOSE OF LAST DOXORUBICIN ADMINISTERED PRIOR TO SAE ONSET 90 MG?DATE OF MOST RECENT DOSE OF DOXORUBIC
     Route: 042
     Dates: start: 20200115
  3. CYCLOPHOSPHAMIDE [Suspect]
     Active Substance: CYCLOPHOSPHAMIDE
     Indication: HER2 positive breast cancer
     Dosage: DATE OF MOST RECENT DOSE OF CYCLOPHOSPHAMIDE PRIOR TO SAE  12/FEB/2020?DOSE OF LAST CYCLOPHOSPHAMIDE
     Route: 042
     Dates: start: 20200115
  4. PANTOPRAZOLE [Concomitant]
     Active Substance: PANTOPRAZOLE
     Dates: start: 20200210
  5. PEGFILGRASTIM [Concomitant]
     Active Substance: PEGFILGRASTIM
     Indication: Blood disorder prophylaxis
     Dates: start: 20200213, end: 20200213
  6. SODIUM CHLORIDE [Concomitant]
     Active Substance: SODIUM CHLORIDE
     Indication: Dehydration
     Dates: start: 20200212, end: 20200212
  7. DEXAMETHASONE [Concomitant]
     Active Substance: DEXAMETHASONE
     Indication: Prophylaxis of nausea and vomiting
     Route: 042
     Dates: start: 20200212
  8. AKYNZEO [Concomitant]
     Active Substance: NETUPITANT\PALONOSETRON HYDROCHLORIDE
     Indication: Prophylaxis of nausea and vomiting
     Dates: start: 20200212, end: 20200212

REACTIONS (1)
  - Alveolitis [Fatal]

NARRATIVE: CASE EVENT DATE: 20200310
